FAERS Safety Report 5880948-1 (Version None)
Quarter: 2008Q3

REPORT INFORMATION
  Report Type: 
  Country: None (occurrence: None)
  Receive Date: 20080910
  Receipt Date: 20080901
  Transmission Date: 20090109
  Serious: Yes (Death)
  Sender: FDA-Public Use
  Company Number: MSTR-NO-0809S-0059

PATIENT
  Age: 77 Year
  Sex: Male

DRUGS (2)
  1. METASTRON [Suspect]
     Indication: BONE PAIN
     Dosage: 116 MBQ, SINGLE DOSE, I.V.
     Route: 042
     Dates: start: 20080613, end: 20080613
  2. METASTRON [Suspect]
     Indication: METASTATIC PAIN
     Dosage: 116 MBQ, SINGLE DOSE, I.V.
     Route: 042
     Dates: start: 20080613, end: 20080613

REACTIONS (1)
  - CONDITION AGGRAVATED [None]
